FAERS Safety Report 15554789 (Version 1)
Quarter: 2018Q4

REPORT INFORMATION
  Report Type: Spontaneous
  Country: US (occurrence: US)
  Receive Date: 20181022
  Receipt Date: 20181022
  Transmission Date: 20190205
  Serious: No
  Sender: FDA-Public Use
  Company Number: None

PATIENT
  Age: 61 Year
  Sex: Female

DRUGS (1)
  1. SIMPONI [Suspect]
     Active Substance: GOLIMUMAB
     Dosage: ?          OTHER FREQUENCY:OTHER;?
     Route: 058
     Dates: start: 20181016

REACTIONS (5)
  - Erythema [None]
  - Memory impairment [None]
  - Confusional state [None]
  - Dyspnoea [None]
  - Feeling hot [None]

NARRATIVE: CASE EVENT DATE: 20181016
